FAERS Safety Report 4886260-1 (Version None)
Quarter: 2006Q1

REPORT INFORMATION
  Report Type: 
  Country: None (occurrence: None)
  Receive Date: 20060118
  Receipt Date: 20060118
  Transmission Date: 20060701
  Serious: Yes (Disabling)
  Sender: FDA-Public Use
  Company Number: None

PATIENT
  Sex: Female
  Weight: 75 kg

DRUGS (1)
  1. DEMEROL [Suspect]
     Indication: ABDOMINAL PAIN
     Dosage: 15 MG   PRN  IV
     Route: 042
     Dates: start: 20060117, end: 20060117

REACTIONS (7)
  - EYE DISORDER [None]
  - EYE MOVEMENT DISORDER [None]
  - MIOSIS [None]
  - MUSCLE TWITCHING [None]
  - PAIN [None]
  - REPETITIVE SPEECH [None]
  - UNRESPONSIVE TO VERBAL STIMULI [None]
